FAERS Safety Report 7352827-4 (Version None)
Quarter: 2011Q1

REPORT INFORMATION
  Report Type: 
  Country: None (occurrence: None)
  Receive Date: 20110310
  Receipt Date: 20110310
  Transmission Date: 20110831
  Serious: Yes (Disabling, Other)
  Sender: FDA-Public Use
  Company Number: None

PATIENT
  Sex: Female
  Weight: 92.9874 kg

DRUGS (2)
  1. CITALOPRAM HYDROBROMIDE [Suspect]
     Indication: DEPRESSION
     Dosage: 60MG A DAY ONCE PO
     Route: 048
     Dates: start: 20090723, end: 20100901
  2. CELEXA [Suspect]

REACTIONS (3)
  - PRODUCT SUBSTITUTION ISSUE [None]
  - OBSESSIVE-COMPULSIVE DISORDER [None]
  - DRUG INEFFECTIVE [None]
